FAERS Safety Report 7426677-4 (Version None)
Quarter: 2011Q2

REPORT INFORMATION
  Report Type: 
  Country: None (occurrence: None)
  Receive Date: 20110420
  Receipt Date: 20110405
  Transmission Date: 20111010
  Serious: Yes (Other)
  Sender: FDA-Public Use
  Company Number: CA-GENENTECH-311574

PATIENT
  Sex: Female

DRUGS (2)
  1. PREDNISONE TAB [Concomitant]
     Indication: PRODUCT USED FOR UNKNOWN INDICATION
  2. XOLAIR [Suspect]
     Indication: ASTHMA
     Dosage: 225 MG, Q2W
     Route: 058
     Dates: start: 20081212

REACTIONS (6)
  - FALL [None]
  - OSTEONECROSIS [None]
  - PAIN IN EXTREMITY [None]
  - OSTEOARTHRITIS [None]
  - FOOT FRACTURE [None]
  - CHEST DISCOMFORT [None]
